FAERS Safety Report 24390199 (Version 1)
Quarter: 2024Q4

REPORT INFORMATION
  Report Type: Spontaneous
  Country: BY (occurrence: BY)
  Receive Date: 20241003
  Receipt Date: 20241003
  Transmission Date: 20250114
  Serious: Yes (Hospitalization, Other)
  Sender: REGENERON
  Company Number: BY-BAYER-2024A139916

PATIENT
  Sex: Female

DRUGS (1)
  1. EYLEA [Suspect]
     Active Substance: AFLIBERCEPT
     Indication: Product used for unknown indication
     Dosage: 40 MG/ML

REACTIONS (13)
  - Visual acuity reduced [Unknown]
  - Visual impairment [Unknown]
  - Blindness [Unknown]
  - Keratic precipitates [Unknown]
  - Hypertension [Unknown]
  - Glucose tolerance impaired [Unknown]
  - Adjustment disorder [Unknown]
  - Endophthalmitis [Unknown]
  - Eye pain [Unknown]
  - Ocular hyperaemia [Unknown]
  - Hypopyon [Unknown]
  - Lenticular opacities [Unknown]
  - Multiple use of single-use product [Unknown]
